FAERS Safety Report 6538706-0 (Version None)
Quarter: 2010Q1

REPORT INFORMATION
  Report Type: 
  Country: None (occurrence: None)
  Receive Date: 20100113
  Receipt Date: 20100113
  Transmission Date: 20100710
  Serious: Yes (Hospitalization, Disabling)
  Sender: FDA-Public Use
  Company Number: None

PATIENT
  Age: 47 Year
  Sex: Male
  Weight: 65.7716 kg

DRUGS (2)
  1. CEPHALEXIN [Suspect]
     Indication: RASH
     Dosage: 500 MG 4X/DAY BY MOUTH
     Route: 048
     Dates: start: 20091104, end: 20091115
  2. CEPHALEXIN [Suspect]
     Indication: RASH
     Dosage: 500 MG 4X/DAY BY MOUTH
     Route: 048
     Dates: start: 20091118, end: 20091123

REACTIONS (7)
  - ANXIETY [None]
  - BLOOD PRESSURE INCREASED [None]
  - DIZZINESS [None]
  - HEADACHE [None]
  - PANIC ATTACK [None]
  - TINNITUS [None]
  - VERTIGO [None]
